FAERS Safety Report 8810437 (Version 1)
Quarter: 2012Q4

REPORT INFORMATION
  Report Type: 
  Country: AR (occurrence: AR)
  Receive Date: 20120927
  Receipt Date: 20120927
  Transmission Date: 20130627
  Serious: Yes (Other)
  Sender: FDA-Public Use
  Company Number: AR-AMGEN-ARGSP2012060507

PATIENT
  Age: 59 Year
  Sex: Male

DRUGS (6)
  1. ENBREL [Suspect]
     Indication: PSORIATIC ARTHROPATHY
     Dosage: 25 mg, 2x/week
     Route: 058
     Dates: start: 20090826
  2. METHOTREXATE [Concomitant]
     Dosage: UNK
  3. ATLANSIL                           /00133101/ [Concomitant]
     Dosage: UNK
  4. MEDOCOR [Concomitant]
     Dosage: UNK
  5. CLOPIDOGREL [Concomitant]
     Dosage: UNK
  6. PAXON                              /01121602/ [Concomitant]
     Dosage: UNK

REACTIONS (2)
  - Psoriatic arthropathy [Unknown]
  - Device related infection [Recovered/Resolved]
